FAERS Safety Report 19485509 (Version 1)
Quarter: 2021Q3

REPORT INFORMATION
  Report Type: Report from Study
  Country: US (occurrence: US)
  Receive Date: 20210702
  Receipt Date: 20210702
  Transmission Date: 20211014
  Serious: No
  Sender: FDA-Public Use
  Company Number: NVSC2021US137879

PATIENT
  Sex: Female

DRUGS (1)
  1. ENTRESTO [Suspect]
     Active Substance: SACUBITRIL\VALSARTAN
     Indication: HYPERTENSION
     Dosage: 50 MG, BID (24/26 MG)
     Route: 048
     Dates: start: 202106

REACTIONS (3)
  - Blood pressure decreased [Unknown]
  - Anxiety [Unknown]
  - Tremor [Unknown]
